FAERS Safety Report 18346739 (Version 4)
Quarter: 2021Q2

REPORT INFORMATION
  Report Type: Report from Study
  Country: DE (occurrence: DE)
  Receive Date: 20201005
  Receipt Date: 20210604
  Transmission Date: 20210717
  Serious: Yes (Hospitalization, Other)
  Sender: FDA-Public Use
  Company Number: DE-SEATTLE GENETICS-2020SGN04375

PATIENT

DRUGS (19)
  1. BRENTUXIMAB VEDOTIN?MPI [Suspect]
     Active Substance: BRENTUXIMAB VEDOTIN
     Dosage: 1.8 MILLIGRAM/KILOGRAM
     Route: 065
     Dates: start: 20201007
  2. DACARBAZINE. [Suspect]
     Active Substance: DACARBAZINE
     Dosage: 250 MILLIGRAM/SQ. METER
     Route: 065
     Dates: start: 20201009
  3. CIPRALEX [Concomitant]
     Active Substance: ESCITALOPRAM OXALATE
     Dosage: 10 MILLIGRAM
     Route: 065
     Dates: start: 20201007
  4. RIBOSETRON [Concomitant]
     Active Substance: GRANISETRON HYDROCHLORIDE
     Dosage: 3 MILLIGRAM
     Route: 065
     Dates: start: 20200916, end: 20200918
  5. DOXORUBICIN [DOXORUBICIN HYDROCHLORIDE] [Suspect]
     Active Substance: DOXORUBICIN HYDROCHLORIDE
     Indication: HODGKIN^S DISEASE
     Dosage: 66 MILLIGRAM/SQ. METER
     Route: 065
     Dates: start: 20200917
  6. DACARBAZINE. [Suspect]
     Active Substance: DACARBAZINE
     Indication: HODGKIN^S DISEASE
     Dosage: 820 MILLIGRAM/SQ. METER
     Route: 065
     Dates: start: 20200918
  7. DEXAMETHASONE. [Suspect]
     Active Substance: DEXAMETHASONE
     Indication: HODGKIN^S DISEASE
     Dosage: UNK
     Route: 065
     Dates: start: 20200917
  8. FUROSEMID                          /00032601/ [Concomitant]
     Active Substance: FUROSEMIDE
     Dosage: 40 MILLIGRAM
     Route: 065
     Dates: start: 20200919, end: 20200920
  9. DEXAMETHASONE. [Suspect]
     Active Substance: DEXAMETHASONE
     Dosage: 40 MILLIGRAM
     Route: 065
     Dates: start: 20201008
  10. EMEND [Concomitant]
     Active Substance: APREPITANT
     Dosage: 125 MILLIGRAM
     Route: 065
     Dates: start: 20201008
  11. BRENTUXIMAB VEDOTIN?MPI [Suspect]
     Active Substance: BRENTUXIMAB VEDOTIN
     Indication: HODGKIN^S DISEASE
     Dosage: UNK
     Route: 065
     Dates: start: 20200916
  12. CYCLOPHOSPHAMIDE. [Suspect]
     Active Substance: CYCLOPHOSPHAMIDE
     Indication: HODGKIN^S DISEASE
     Dosage: 2000 MILLIGRAM/SQ. METER
     Route: 065
     Dates: start: 20200917
  13. DOXORUBICIN [DOXORUBICIN HYDROCHLORIDE] [Suspect]
     Active Substance: DOXORUBICIN HYDROCHLORIDE
     Dosage: 40 MILLIGRAM/SQ. METER
     Route: 065
     Dates: start: 20201008
  14. ETOPOSIDE. [Suspect]
     Active Substance: ETOPOSIDE
     Indication: HODGKIN^S DISEASE
     Dosage: 720 MILLIGRAM/SQ. METER
     Route: 065
     Dates: start: 20200917
  15. PREGABADOR [Concomitant]
     Active Substance: PREGABALIN
     Dosage: 25 MILLIGRAM
     Route: 065
     Dates: start: 20200918
  16. CYCLOPHOSPHAMIDE. [Suspect]
     Active Substance: CYCLOPHOSPHAMIDE
     Dosage: 1100 MILLIGRAM/SQ. METER
     Route: 065
     Dates: start: 20201008
  17. ETOPOSIDE. [Suspect]
     Active Substance: ETOPOSIDE
     Dosage: 125 MILLIGRAM/SQ. METER
     Route: 065
     Dates: start: 20201008
  18. CIPRALEX [Concomitant]
     Active Substance: ESCITALOPRAM OXALATE
     Dosage: 5 MILLIGRAM
     Route: 065
     Dates: start: 20200914
  19. HUMATIN [Concomitant]
     Active Substance: PAROMOMYCIN SULFATE
     Dosage: UNK
     Route: 065
     Dates: start: 20201007, end: 20201019

REACTIONS (2)
  - Gastrointestinal toxicity [Recovered/Resolved]
  - Dysphagia [Recovered/Resolved]

NARRATIVE: CASE EVENT DATE: 20200926
